FAERS Safety Report 23453268 (Version 2)
Quarter: 2025Q1

REPORT INFORMATION
  Report Type: Spontaneous
  Country: US (occurrence: US)
  Receive Date: 20240129
  Receipt Date: 20250303
  Transmission Date: 20250409
  Serious: Yes (Disabling)
  Sender: PFIZER
  Company Number: US-PFIZER INC-PV202400012098

PATIENT
  Age: 63 Year
  Sex: Female

DRUGS (1)
  1. XELJANZ XR [Suspect]
     Active Substance: TOFACITINIB CITRATE

REACTIONS (2)
  - Dysgraphia [Unknown]
  - Peripheral swelling [Unknown]
